FAERS Safety Report 4359786-7 (Version None)
Quarter: 2004Q2

REPORT INFORMATION
  Report Type: 
  Country: None (occurrence: None)
  Receive Date: 20040518
  Receipt Date: 20040503
  Transmission Date: 20050107
  Serious: Yes (Hospitalization)
  Sender: FDA-Public Use
  Company Number: FR-GLAXOSMITHKLINE-B0322250B

PATIENT
  Age: 18 Year
  Sex: Female

DRUGS (6)
  1. TRIZIVIR [Suspect]
     Indication: HIV INFECTION
     Dosage: 1TAB TWICE PER DAY
     Route: 048
     Dates: start: 20010201, end: 20031223
  2. COMBIVIR [Suspect]
     Indication: HIV INFECTION
     Dosage: 1TAB TWICE PER DAY
     Route: 048
     Dates: start: 20031223
  3. VIRACEPT [Suspect]
     Indication: HIV INFECTION
     Dosage: 5UNIT TWICE PER DAY
     Route: 048
     Dates: start: 20031223
  4. ACETAMINOPHEN [Concomitant]
     Route: 048
  5. FLAGYL [Concomitant]
     Route: 067
  6. FLAGYL [Concomitant]
     Indication: VAGINAL INFECTION
     Route: 067

REACTIONS (8)
  - ARTHRALGIA [None]
  - CONJUNCTIVITIS [None]
  - COUGH [None]
  - DRUG EXPOSURE DURING PREGNANCY [None]
  - INFLUENZA LIKE ILLNESS [None]
  - PRE-ECLAMPSIA [None]
  - PYREXIA [None]
  - RHINITIS [None]
